FAERS Safety Report 23260543 (Version 1)
Quarter: 2023Q4

REPORT INFORMATION
  Report Type: Report from Study
  Country: CN (occurrence: CN)
  Receive Date: 20231205
  Receipt Date: 20231205
  Transmission Date: 20240109
  Serious: Yes (Life-Threatening, Hospitalization)
  Sender: FDA-Public Use
  Company Number: CN-SHANGHAI JUNSHI BIOSCIENCES CO., LTD.-CN2023008001

PATIENT

DRUGS (78)
  1. TORIPALIMAB [Suspect]
     Active Substance: TORIPALIMAB
     Indication: Gastric cancer
     Dosage: 240 MG, Q3W
     Route: 041
     Dates: start: 20230408, end: 20230422
  2. TORIPALIMAB [Suspect]
     Active Substance: TORIPALIMAB
     Dosage: 240 MG, Q3W
     Route: 041
     Dates: start: 20230531, end: 20230531
  3. TORIPALIMAB [Suspect]
     Active Substance: TORIPALIMAB
     Dosage: 240 MG, Q3W
     Route: 041
     Dates: start: 20230626, end: 20230718
  4. TORIPALIMAB [Suspect]
     Active Substance: TORIPALIMAB
     Dosage: 240 MG, Q3W
     Route: 041
     Dates: start: 20230718, end: 20230802
  5. TORIPALIMAB [Suspect]
     Active Substance: TORIPALIMAB
     Dosage: 240 MG, Q3W
     Route: 041
     Dates: end: 20231009
  6. OXALIPLATIN [Suspect]
     Active Substance: OXALIPLATIN
     Indication: Gastric cancer
     Dosage: 186 MG, Q3W
     Route: 041
     Dates: start: 20230408, end: 20230422
  7. OXALIPLATIN [Suspect]
     Active Substance: OXALIPLATIN
     Dosage: 135 MG, Q3W
     Route: 041
     Dates: start: 20230531, end: 20230601
  8. OXALIPLATIN [Suspect]
     Active Substance: OXALIPLATIN
     Dosage: 86.7 MG, Q3W
     Route: 041
     Dates: start: 20230626
  9. OXALIPLATIN [Suspect]
     Active Substance: OXALIPLATIN
     Dosage: 86.7 MG, Q3W
     Route: 041
     Dates: start: 20230718, end: 20230802
  10. OXALIPLATIN [Suspect]
     Active Substance: OXALIPLATIN
     Dosage: 86.7 MG, Q3W
     Route: 041
     Dates: end: 20231009
  11. GIMERACIL\OTERACIL\TEGAFUR [Suspect]
     Active Substance: GIMERACIL\OTERACIL POTASSIUM\TEGAFUR
     Indication: Gastric cancer
     Dosage: 50 MG, Q3W (D1-D14 AT EVERY CYCLE, BID)
     Route: 048
     Dates: start: 20230408, end: 20230422
  12. GIMERACIL\OTERACIL\TEGAFUR [Suspect]
     Active Substance: GIMERACIL\OTERACIL POTASSIUM\TEGAFUR
     Dosage: 40 MG, Q3W (D1-D14 AT EVERY CYCLE, BID)
     Route: 048
     Dates: start: 20230531, end: 202306
  13. GIMERACIL\OTERACIL\TEGAFUR [Suspect]
     Active Substance: GIMERACIL\OTERACIL POTASSIUM\TEGAFUR
     Dosage: 40 MG, Q3W (D1-D14 AT EVERY CYCLE, BID)
     Route: 048
     Dates: start: 20230626
  14. GIMERACIL\OTERACIL\TEGAFUR [Suspect]
     Active Substance: GIMERACIL\OTERACIL POTASSIUM\TEGAFUR
     Dosage: 40 MG, Q3W (D1-D14 AT EVERY CYCLE, BID)
     Route: 048
     Dates: start: 20230718, end: 20230802
  15. GIMERACIL\OTERACIL\TEGAFUR [Suspect]
     Active Substance: GIMERACIL\OTERACIL POTASSIUM\TEGAFUR
     Dosage: 40 MG, Q3W (D1-D14 AT EVERY CYCLE, BID)
     Route: 048
     Dates: end: 20231009
  16. FERRIC POLYSACCHARIDE COMPLEX [Concomitant]
     Active Substance: FERRIC POLYSACCHARIDE COMPLEX
     Indication: Anaemia
     Dosage: 150 MG, QD
     Route: 048
     Dates: start: 20230718
  17. BATILOL [Concomitant]
     Active Substance: BATILOL
     Indication: White blood cell count decreased
     Dosage: 60 MG, BID
     Route: 048
     Dates: start: 20230718
  18. BATILOL [Concomitant]
     Active Substance: BATILOL
     Indication: Neutrophil count decreased
  19. GRANULOCYTE COLONY-STIMULATING FACTOR NOS [Concomitant]
     Active Substance: GRANULOCYTE COLONY-STIMULATING FACTOR NOS
     Indication: White blood cell count decreased
     Dosage: 150 UG, QD
     Route: 058
     Dates: start: 20230808, end: 20230810
  20. GRANULOCYTE COLONY-STIMULATING FACTOR NOS [Concomitant]
     Active Substance: GRANULOCYTE COLONY-STIMULATING FACTOR NOS
     Indication: Neutrophil count decreased
     Dosage: 150 UG, QD
     Route: 058
     Dates: start: 20230817, end: 20230818
  21. GRANULOCYTE COLONY-STIMULATING FACTOR NOS [Concomitant]
     Active Substance: GRANULOCYTE COLONY-STIMULATING FACTOR NOS
     Dosage: 300 UG, QD
     Route: 058
     Dates: start: 20230903, end: 20230904
  22. GRANULOCYTE COLONY-STIMULATING FACTOR NOS [Concomitant]
     Active Substance: GRANULOCYTE COLONY-STIMULATING FACTOR NOS
     Dosage: 150 UG, QD
     Route: 058
  23. GRANULOCYTE COLONY-STIMULATING FACTOR NOS [Concomitant]
     Active Substance: GRANULOCYTE COLONY-STIMULATING FACTOR NOS
     Dosage: 150 UG, QD
     Route: 058
  24. GRANULOCYTE COLONY-STIMULATING FACTOR NOS [Concomitant]
     Active Substance: GRANULOCYTE COLONY-STIMULATING FACTOR NOS
     Dosage: 150 UG, SINGLE
     Route: 058
  25. GRANULOCYTE COLONY-STIMULATING FACTOR NOS [Concomitant]
     Active Substance: GRANULOCYTE COLONY-STIMULATING FACTOR NOS
     Dosage: 150 UG, SINGLE
     Route: 058
  26. VITAMIN C [Concomitant]
     Active Substance: ASCORBIC ACID
     Dosage: 2 G, QD
     Route: 042
     Dates: start: 20230821, end: 20230904
  27. VITAMIN C [Concomitant]
     Active Substance: ASCORBIC ACID
     Dosage: 500 MG, QD
     Route: 041
     Dates: start: 20230906, end: 20230919
  28. VITAMIN C [Concomitant]
     Active Substance: ASCORBIC ACID
     Dosage: 1000 MG, QD
     Route: 041
     Dates: start: 20230919, end: 20230926
  29. VITAMIN B6 [Concomitant]
     Active Substance: PYRIDOXINE HYDROCHLORIDE
     Indication: Vitamin supplementation
     Dosage: 0.2 G, QD
     Route: 042
     Dates: start: 20230821, end: 20230904
  30. VITAMIN B6 [Concomitant]
     Active Substance: PYRIDOXINE HYDROCHLORIDE
     Indication: Vomiting
  31. POTASSIUM CHLORIDE [Concomitant]
     Active Substance: POTASSIUM CHLORIDE
     Indication: Hypokalaemia
     Dosage: 10 ML, QD
     Route: 041
     Dates: start: 20230919, end: 20230926
  32. POTASSIUM CHLORIDE [Concomitant]
     Active Substance: POTASSIUM CHLORIDE
     Indication: Prophylaxis
     Dosage: 20 ML, QD
     Route: 041
     Dates: start: 20230919, end: 20230926
  33. POTASSIUM CHLORIDE [Concomitant]
     Active Substance: POTASSIUM CHLORIDE
     Dosage: 40 ML, QD
     Route: 041
     Dates: start: 20230927, end: 20231015
  34. Medium and Long Chain Fat Emulsion [Concomitant]
     Dosage: 250 ML, QD
     Route: 041
     Dates: start: 20230919, end: 20230926
  35. FAT EMULSION, AMINO ACIDS (17) AND GLUCOSE (11%) [Concomitant]
     Dosage: 1440 ML, QD
     Route: 041
     Dates: start: 20230919, end: 20230926
  36. Fat soluble vitamins nos [Concomitant]
     Dosage: 10 ML, QD
     Route: 041
     Dates: start: 20230919, end: 20231015
  37. Multi Trace Elements (II) [Concomitant]
     Dosage: 10 ML, QD
     Route: 041
     Dates: start: 20230919, end: 20231015
  38. FISH OIL [Concomitant]
     Active Substance: FISH OIL
     Dosage: 100 ML, QD
     Route: 041
     Dates: start: 20230919, end: 20231015
  39. SODIUM CHLORIDE [Concomitant]
     Active Substance: SODIUM CHLORIDE
     Indication: Hyponatraemia
     Dosage: 30 ML, QD
     Route: 041
     Dates: start: 20230921, end: 20230922
  40. SODIUM CHLORIDE [Concomitant]
     Active Substance: SODIUM CHLORIDE
     Indication: Prophylaxis
     Dosage: 60 ML, QD
     Route: 041
     Dates: start: 20230921, end: 20230924
  41. SODIUM CHLORIDE [Concomitant]
     Active Substance: SODIUM CHLORIDE
     Dosage: 50 ML, QD
     Route: 041
     Dates: start: 20230923, end: 20230924
  42. SODIUM CHLORIDE [Concomitant]
     Active Substance: SODIUM CHLORIDE
     Dosage: 20 ML, QD
     Route: 041
     Dates: start: 20230925, end: 20230926
  43. SODIUM CHLORIDE [Concomitant]
     Active Substance: SODIUM CHLORIDE
     Dosage: 30 ML, QD
     Route: 041
     Dates: start: 20230927, end: 20230929
  44. SODIUM CHLORIDE [Concomitant]
     Active Substance: SODIUM CHLORIDE
     Dosage: 130 ML, QD
     Route: 041
     Dates: start: 20230927, end: 20230929
  45. SODIUM CHLORIDE [Concomitant]
     Active Substance: SODIUM CHLORIDE
     Dosage: 100 ML
     Route: 041
     Dates: start: 20230930, end: 20231001
  46. SODIUM CHLORIDE [Concomitant]
     Active Substance: SODIUM CHLORIDE
     Dosage: 50 ML, QD
     Route: 041
     Dates: start: 20231002, end: 20231015
  47. SODIUM CHLORIDE [Concomitant]
     Active Substance: SODIUM CHLORIDE
     Dosage: 30 ML, 2 TIMES
     Route: 048
     Dates: start: 20231008, end: 20231008
  48. SODIUM CHLORIDE [Concomitant]
     Active Substance: SODIUM CHLORIDE
     Dosage: 30 ML, SINGLE
     Route: 041
     Dates: start: 20231010, end: 20231015
  49. SODIUM CHLORIDE [Concomitant]
     Active Substance: SODIUM CHLORIDE
     Dosage: 40 ML, QD
     Route: 041
  50. SODIUM CHLORIDE [Concomitant]
     Active Substance: SODIUM CHLORIDE
  51. SODIUM CHLORIDE [Concomitant]
     Active Substance: SODIUM CHLORIDE
     Dosage: 30 ML, QD
     Route: 041
  52. SODIUM CHLORIDE [Concomitant]
     Active Substance: SODIUM CHLORIDE
     Dosage: 40 ML, QD
     Route: 041
     Dates: start: 20230925, end: 20230926
  53. MAGNESIUM SULFATE [Concomitant]
     Active Substance: MAGNESIUM SULFATE\MAGNESIUM SULFATE HEPTAHYDRATE
     Indication: Hypomagnesaemia
     Dosage: 50 ML, 2 TIMES
     Route: 041
     Dates: start: 20230924, end: 20230925
  54. MAGNESIUM SULFATE [Concomitant]
     Active Substance: MAGNESIUM SULFATE\MAGNESIUM SULFATE HEPTAHYDRATE
     Dosage: 10 ML, QD
     Route: 041
     Dates: start: 20230927, end: 20231002
  55. MAGNESIUM SULFATE [Concomitant]
     Active Substance: MAGNESIUM SULFATE\MAGNESIUM SULFATE HEPTAHYDRATE
     Dosage: 5 ML, QD
     Route: 041
     Dates: start: 20231003, end: 20231015
  56. DEXTROSE [Concomitant]
     Active Substance: DEXTROSE\DEXTROSE MONOHYDRATE
     Dosage: 20 ML, SINGLE
     Route: 048
     Dates: start: 20230925, end: 20230925
  57. DEXTROSE [Concomitant]
     Active Substance: DEXTROSE\DEXTROSE MONOHYDRATE
     Dosage: 500 ML, QD
     Route: 041
     Dates: start: 20230927, end: 20231015
  58. DEXTROSE [Concomitant]
     Active Substance: DEXTROSE\DEXTROSE MONOHYDRATE
     Dosage: 250 ML, QD
     Route: 041
  59. CALCIUM GLUCONATE [Concomitant]
     Active Substance: CALCIUM GLUCONATE
     Dosage: 10 ML, QD
     Route: 041
     Dates: start: 20230927, end: 20231015
  60. FAT EMULSION NOS [Concomitant]
     Active Substance: EGG PHOSPHOLIPIDS\SAFFLOWER OIL\SOYBEAN OIL
     Dosage: 250 ML, QD
     Route: 041
     Dates: start: 20230927, end: 20231015
  61. ALANYL GLUTAMINE [Concomitant]
     Active Substance: ALANYL GLUTAMINE
     Dosage: 10 G, QD
     Route: 041
     Dates: start: 20230927, end: 20231015
  62. AMOXICILLIN\CLAVULANATE POTASSIUM [Concomitant]
     Active Substance: AMOXICILLIN\CLAVULANATE POTASSIUM
     Dosage: 1.8 G, BID
     Route: 042
     Dates: start: 20230904, end: 20230904
  63. LYSINE ACETYLSALICYLATE [Concomitant]
     Active Substance: ASPIRIN DL-LYSINE
     Dosage: 0.9 G, SINGLE
     Route: 041
     Dates: start: 20230904, end: 20230904
  64. PIPERACILLIN SODIUM\SULBACTAM SODIUM [Concomitant]
     Active Substance: PIPERACILLIN SODIUM\SULBACTAM SODIUM
     Dosage: 4.5 G
     Route: 041
     Dates: start: 20230904, end: 20230911
  65. PIPERACILLIN SODIUM\SULBACTAM SODIUM [Concomitant]
     Active Substance: PIPERACILLIN SODIUM\SULBACTAM SODIUM
  66. CEFUROXIME SODIUM [Concomitant]
     Active Substance: CEFUROXIME SODIUM
     Dosage: 1.5 G, BID
     Route: 041
     Dates: start: 20230926, end: 20230929
  67. CEFUROXIME SODIUM [Concomitant]
     Active Substance: CEFUROXIME SODIUM
     Dosage: 1.5 G, SINGLE
     Route: 041
     Dates: start: 20230929, end: 20230929
  68. CEFOPERAZONE SODIUM\SULBACTAM SODIUM [Concomitant]
     Active Substance: CEFOPERAZONE SODIUM\SULBACTAM SODIUM
     Dosage: 3 G, 2 TIMES
     Route: 041
     Dates: start: 20230929, end: 20230929
  69. CEFOPERAZONE SODIUM\SULBACTAM SODIUM [Concomitant]
     Active Substance: CEFOPERAZONE SODIUM\SULBACTAM SODIUM
     Dosage: 3 G, 3 TIMES
     Route: 041
     Dates: start: 20230930, end: 20231003
  70. Compound amionprine and antipyrine [Concomitant]
     Dosage: 2 ML, SINGLE
     Route: 030
     Dates: start: 20231014, end: 20231014
  71. DEXTROSE [Concomitant]
     Active Substance: DEXTROSE\DEXTROSE MONOHYDRATE
     Dosage: 250 ML, QD
     Route: 041
     Dates: start: 20230927, end: 20231015
  72. LEVOTHYROXINE SODIUM [Concomitant]
     Active Substance: LEVOTHYROXINE SODIUM
     Indication: Hypothyroidism
     Dosage: 12.5 UG, QD
     Route: 048
     Dates: start: 20231012
  73. LEVOTHYROXINE SODIUM [Concomitant]
     Active Substance: LEVOTHYROXINE SODIUM
  74. INSULIN HUMAN [Concomitant]
     Active Substance: INSULIN HUMAN
     Indication: Prophylaxis
     Dosage: 18 IU, QD
     Route: 041
     Dates: start: 20230919, end: 20230926
  75. INSULIN HUMAN [Concomitant]
     Active Substance: INSULIN HUMAN
     Dosage: 32 IU, QD
     Route: 041
     Dates: start: 20230927, end: 20231005
  76. INSULIN HUMAN [Concomitant]
     Active Substance: INSULIN HUMAN
     Dosage: 30 IU, SINGLE
     Route: 041
     Dates: start: 20231006, end: 20231006
  77. INSULIN HUMAN [Concomitant]
     Active Substance: INSULIN HUMAN
     Dosage: 26 IU, SINGLE
     Route: 041
     Dates: start: 20231007, end: 20231007
  78. INSULIN HUMAN [Concomitant]
     Active Substance: INSULIN HUMAN
     Dosage: 26 IU, SINGLE
     Route: 041

REACTIONS (5)
  - Adrenal insufficiency [Recovering/Resolving]
  - Pneumonia [Recovering/Resolving]
  - Asthenia [Recovering/Resolving]
  - Vertigo positional [Recovered/Resolved]
  - Decreased appetite [Recovering/Resolving]

NARRATIVE: CASE EVENT DATE: 20230801
